FAERS Safety Report 5700992-4 (Version None)
Quarter: 2008Q2

REPORT INFORMATION
  Report Type: 
  Country: None (occurrence: None)
  Receive Date: 20080407
  Receipt Date: 20080325
  Transmission Date: 20081010
  Serious: Yes (Hospitalization)
  Sender: FDA-Public Use
  Company Number: 100#08#2008-01721

PATIENT
  Age: 54 Year
  Sex: Female

DRUGS (2)
  1. METHOTREXATE [Suspect]
     Indication: RHEUMATOID ARTHRITIS
     Dosage: 7.5 MG/WEEK ORAL
     Route: 048
  2. BUCILLAMINE (BUCILLAMINE) [Concomitant]

REACTIONS (11)
  - ALANINE AMINOTRANSFERASE INCREASED [None]
  - ANGIOCENTRIC LYMPHOMA [None]
  - ASPARTATE AMINOTRANSFERASE INCREASED [None]
  - BLOOD ALKALINE PHOSPHATASE INCREASED [None]
  - BLOOD LACTATE DEHYDROGENASE INCREASED [None]
  - CHEST PAIN [None]
  - CONDITION AGGRAVATED [None]
  - DIFFUSE LARGE B-CELL LYMPHOMA [None]
  - GAMMA-GLUTAMYLTRANSFERASE INCREASED [None]
  - INTERLEUKIN-2 RECEPTOR INCREASED [None]
  - RHEUMATOID ARTHRITIS [None]
